FAERS Safety Report 7118694-9 (Version None)
Quarter: 2010Q4

REPORT INFORMATION
  Report Type: 
  Country: None (occurrence: None)
  Receive Date: 20101123
  Receipt Date: 20101109
  Transmission Date: 20110411
  Serious: No
  Sender: FDA-Public Use
  Company Number: US-PFIZER INC-2010148437

PATIENT
  Age: 52 Year
  Sex: Female
  Weight: 81.633 kg

DRUGS (4)
  1. ADVIL [Suspect]
     Indication: JOINT INJURY
     Dosage: 4 TABLETS EVERY 6 HOURS
     Route: 048
     Dates: start: 20101001
  2. VICODIN [Concomitant]
     Dosage: AT NIGHT
  3. LEXAPRO [Concomitant]
  4. UNISOM [Concomitant]

REACTIONS (1)
  - DYSGEUSIA [None]
